FAERS Safety Report 25281552 (Version 1)
Quarter: 2025Q2

REPORT INFORMATION
  Report Type: Spontaneous
  Country: US (occurrence: US)
  Receive Date: 20250508
  Receipt Date: 20250508
  Transmission Date: 20250717
  Serious: Yes (Death, Other)
  Sender: ORGANON
  Company Number: US-ORGANON-O2505USA000389

PATIENT
  Age: 30 Year
  Sex: Female

DRUGS (2)
  1. NEXPLANON [Suspect]
     Active Substance: ETONOGESTREL
     Route: 059
  2. NEXPLANON [Concomitant]
     Active Substance: ETONOGESTREL
     Route: 059

REACTIONS (2)
  - Seizure [Fatal]
  - Cardiac failure [Fatal]
